FAERS Safety Report 4965702-7 (Version None)
Quarter: 2006Q1

REPORT INFORMATION
  Report Type: 
  Country: None (occurrence: None)
  Receive Date: 20060331
  Receipt Date: 20060317
  Transmission Date: 20060701
  Serious: Yes (Death)
  Sender: FDA-Public Use
  Company Number: 223153

PATIENT
  Sex: Female

DRUGS (1)
  1. RAPTIVA [Suspect]

REACTIONS (1)
  - BREAST CANCER FEMALE [None]
